FAERS Safety Report 14536416 (Version 1)
Quarter: 2018Q1

REPORT INFORMATION
  Report Type: Spontaneous
  Country: US (occurrence: US)
  Receive Date: 20180215
  Receipt Date: 20180215
  Transmission Date: 20180509
  Serious: Yes (Hospitalization)
  Sender: FDA-Public Use
  Company Number: None

PATIENT
  Age: 59 Year
  Sex: Male
  Weight: 203.1 kg

DRUGS (11)
  1. WARFARIN [Suspect]
     Active Substance: WARFARIN
     Indication: ATRIAL FLUTTER
     Route: 048
  2. BENICAR [Concomitant]
     Active Substance: OLMESARTAN MEDOXOMIL
  3. DUREZOL [Concomitant]
     Active Substance: DIFLUPREDNATE
  4. LASIX [Concomitant]
     Active Substance: FUROSEMIDE
  5. NARCAN [Concomitant]
     Active Substance: NALOXONE HYDROCHLORIDE
  6. CYMBALTA [Concomitant]
     Active Substance: DULOXETINE HYDROCHLORIDE
  7. TOPROL XL [Concomitant]
     Active Substance: METOPROLOL SUCCINATE
  8. ECOTRIN [Suspect]
     Active Substance: ASPIRIN
     Indication: ATRIAL FLUTTER
     Route: 048
  9. HUMULIN N+R [Concomitant]
  10. LUNESTA [Concomitant]
     Active Substance: ESZOPICLONE
  11. OCUFLOX [Concomitant]
     Active Substance: OFLOXACIN

REACTIONS (9)
  - Epistaxis [None]
  - Acute kidney injury [None]
  - Septic shock [None]
  - Hyperkalaemia [None]
  - Bradycardia [None]
  - International normalised ratio increased [None]
  - Haemoglobin decreased [None]
  - Lactic acidosis [None]
  - Abscess limb [None]

NARRATIVE: CASE EVENT DATE: 20171230
